FAERS Safety Report 8164465-4 (Version None)
Quarter: 2012Q1

REPORT INFORMATION
  Report Type: 
  Country: None (occurrence: None)
  Receive Date: 20120224
  Receipt Date: 20120208
  Transmission Date: 20120608
  Serious: Yes (Other)
  Sender: FDA-Public Use
  Company Number: US-ASTRAZENECA-2012SE08526

PATIENT
  Sex: Female

DRUGS (3)
  1. SEROQUEL XR [Suspect]
     Route: 048
  2. DIURETIC [Concomitant]
  3. STEROID [Concomitant]

REACTIONS (9)
  - DIARRHOEA [None]
  - INFECTION [None]
  - PHARYNGEAL CYST [None]
  - EAR CONGESTION [None]
  - OROPHARYNGEAL PAIN [None]
  - WHITE BLOOD CELL COUNT DECREASED [None]
  - THROAT TIGHTNESS [None]
  - TINNITUS [None]
  - DYSPHAGIA [None]
